FAERS Safety Report 17848762 (Version 5)
Quarter: 2021Q1

REPORT INFORMATION
  Report Type: Report from Study
  Country: DO (occurrence: DO)
  Receive Date: 20200602
  Receipt Date: 20210306
  Transmission Date: 20210419
  Serious: Yes (Life-Threatening, Hospitalization, Other)
  Sender: FDA-Public Use
  Company Number: PHHY2019DO090828

PATIENT
  Age: 31 Year
  Sex: Female

DRUGS (5)
  1. GILENYA [Suspect]
     Active Substance: FINGOLIMOD HYDROCHLORIDE
     Dosage: 0.5 MG, QD
     Route: 050
     Dates: start: 20200211
  2. VITAMIN D [Concomitant]
     Active Substance: VITAMIN D NOS
     Indication: PRODUCT USED FOR UNKNOWN INDICATION
     Dosage: UNK
     Route: 065
     Dates: start: 202001
  3. VITAMIN B7 [Concomitant]
     Indication: PRODUCT USED FOR UNKNOWN INDICATION
     Dosage: UNK
     Route: 065
     Dates: start: 202001
  4. GILENYA [Suspect]
     Active Substance: FINGOLIMOD HYDROCHLORIDE
     Indication: MULTIPLE SCLEROSIS
     Dosage: 0.5 MG, QD
     Route: 048
     Dates: start: 20200109
  5. GILENYA [Suspect]
     Active Substance: FINGOLIMOD HYDROCHLORIDE
     Indication: RELAPSING-REMITTING MULTIPLE SCLEROSIS
     Dosage: 0.5 MG, QD
     Route: 048
     Dates: start: 2015

REACTIONS (16)
  - Mydriasis [Unknown]
  - Spinal pain [Recovered/Resolved]
  - Hemiparesis [Unknown]
  - Vision blurred [Unknown]
  - Headache [Unknown]
  - Arthralgia [Recovered/Resolved]
  - Suicide attempt [Unknown]
  - Central nervous system lesion [Unknown]
  - Psychotic disorder [Unknown]
  - Postpartum disorder [Unknown]
  - Normal newborn [Unknown]
  - Affective disorder [Unknown]
  - Limb discomfort [Unknown]
  - Abdominal pain upper [Recovered/Resolved]
  - Cognitive disorder [Unknown]
  - Maternal exposure during pregnancy [Unknown]

NARRATIVE: CASE EVENT DATE: 20200219
